FAERS Safety Report 9694948 (Version 2)
Quarter: 2013Q4

REPORT INFORMATION
  Report Type: Spontaneous
  Country: US (occurrence: US)
  Receive Date: 20131119
  Receipt Date: 20131226
  Transmission Date: 20140711
  Serious: No
  Sender: FDA-Public Use
  Company Number: US-PFIZER INC-2013325829

PATIENT
  Sex: Female

DRUGS (1)
  1. ADVIL PM [Suspect]
     Dosage: UNK
     Route: 048
     Dates: start: 2013

REACTIONS (2)
  - Drug ineffective [Unknown]
  - Headache [Unknown]
